FAERS Safety Report 9853985 (Version 2)
Quarter: 2014Q1

REPORT INFORMATION
  Report Type: Report from Study
  Country: NL (occurrence: NL)
  Receive Date: 20140129
  Receipt Date: 20140129
  Transmission Date: 20141002
  Serious: Yes (Death, Hospitalization)
  Sender: FDA-Public Use
  Company Number: NL-ABBVIE-11P-114-0701257-00

PATIENT
  Sex: 0

DRUGS (18)
  1. HUMIRA [Suspect]
     Indication: RHEUMATOID ARTHRITIS
     Route: 058
     Dates: start: 20100105
  2. HUMIRA [Suspect]
     Indication: PSORIASIS
  3. BUMETANIDE [Concomitant]
     Indication: OEDEMA
     Route: 048
  4. CALCIUM CARBONATE W/COLECALCIFEROL [Concomitant]
     Indication: OSTEOPOROSIS PROPHYLAXIS
     Dosage: 1.25 G/440 IU
     Route: 048
  5. CICLOSPORINE [Concomitant]
     Indication: RHEUMATOID ARTHRITIS
     Route: 048
  6. POTASSIUM CHLORIDE [Concomitant]
     Indication: MINERAL SUPPLEMENTATION
     Dosage: TABLET MGA 600 MG (8 MMOL)
     Route: 048
  7. LACTULOSE [Concomitant]
     Indication: CONSTIPATION
     Route: 048
  8. OSELTAMIVIR [Concomitant]
     Indication: PRODUCT USED FOR UNKNOWN INDICATION
     Route: 048
  9. OXAZEPAM [Concomitant]
     Indication: SEDATION
     Route: 048
  10. PANTOPRAZOL [Concomitant]
     Indication: PROPHYLAXIS AGAINST GASTROINTESTINAL ULCER
     Dosage: TABLET MSR
     Route: 048
  11. SPIRONOLACTONE [Concomitant]
     Indication: OEDEMA
     Route: 048
  12. THIAMINE [Concomitant]
     Indication: VITAMIN B1
     Route: 048
  13. NORFLOXACINE [Concomitant]
     Indication: URINARY TRACT INFECTION
     Route: 048
  14. CALCIPOTRIOL [Concomitant]
     Indication: PRODUCT USED FOR UNKNOWN INDICATION
     Route: 061
  15. DAIVONEX [Concomitant]
     Indication: PRODUCT USED FOR UNKNOWN INDICATION
     Dosage: 50 MCG/G AS NEEDED
     Route: 061
  16. DOVOBET [Concomitant]
     Indication: PRODUCT USED FOR UNKNOWN INDICATION
     Route: 061
  17. DOMPERIDON [Concomitant]
     Indication: PRODUCT USED FOR UNKNOWN INDICATION
     Route: 048
  18. RHINOCORT [Concomitant]
     Indication: PRODUCT USED FOR UNKNOWN INDICATION
     Dosage: 32 MCG/DOSE PUFF AS NEEDED
     Route: 045

REACTIONS (6)
  - Death [Fatal]
  - Investigation [Unknown]
  - Cystitis [Not Recovered/Not Resolved]
  - Pharyngitis [Not Recovered/Not Resolved]
  - Pneumonia [Not Recovered/Not Resolved]
  - Pyrexia [Unknown]
